FAERS Safety Report 5364764-5 (Version None)
Quarter: 2007Q2

REPORT INFORMATION
  Report Type: 
  Country: None (occurrence: None)
  Receive Date: 20070530
  Receipt Date: 20070227
  Transmission Date: 20071010
  Serious: No
  Sender: FDA-Public Use
  Company Number: 2006PV010166

PATIENT
  Age: 68 Year
  Sex: Male
  Weight: 95.2554 kg

DRUGS (16)
  1. BYETTA [Suspect]
     Indication: DIABETES MELLITUS NON-INSULIN-DEPENDENT
     Dosage: SEE IMAGE
     Route: 058
     Dates: start: 20060224, end: 20060323
  2. BYETTA [Suspect]
     Indication: DIABETES MELLITUS NON-INSULIN-DEPENDENT
     Dosage: SEE IMAGE
     Route: 058
     Dates: start: 20060302
  3. BYETTA [Suspect]
     Indication: DIABETES MELLITUS NON-INSULIN-DEPENDENT
     Dosage: SEE IMAGE
     Route: 058
     Dates: start: 20060324
  4. BYETTA [Suspect]
  5. COREG [Suspect]
     Indication: DRUG USE FOR UNKNOWN INDICATION
     Dosage: 6.25 MG; BID; PO
     Route: 048
  6. ZOCOR [Suspect]
     Dosage: 20 MG; QD; PO
     Route: 048
     Dates: start: 20040701
  7. GLYBURIDE [Concomitant]
  8. METFORMIN HCL [Concomitant]
  9. ACARBOSE [Concomitant]
  10. COLACE [Concomitant]
  11. COREG [Concomitant]
  12. BUMETANIDE [Concomitant]
  13. ASPIRIN [Concomitant]
  14. STOOL SOFTENER [Concomitant]
  15. MINERAL OIL [Concomitant]
  16. LANTUS [Concomitant]

REACTIONS (3)
  - CONSTIPATION [None]
  - NAUSEA [None]
  - WEIGHT DECREASED [None]
